FAERS Safety Report 16263401 (Version 1)
Quarter: 2019Q2

REPORT INFORMATION
  Report Type: Spontaneous
  Country: SE (occurrence: SE)
  Receive Date: 20190502
  Receipt Date: 20190502
  Transmission Date: 20190711
  Serious: Yes (Hospitalization)
  Sender: FDA-Public Use
  Company Number: SE-TEVA-2019-SE-1044082

PATIENT
  Sex: Female

DRUGS (1)
  1. DIMOR [Suspect]
     Active Substance: LOPERAMIDE
     Indication: IRRITABLE BOWEL SYNDROME
     Dosage: DOSE IS SET TO  ^10 PCS PER DAY FOR 4 DAYS ^ AND  ^30 PCS ^
     Route: 048
     Dates: start: 20150616, end: 20150619

REACTIONS (2)
  - Constipation [Unknown]
  - Intentional overdose [Unknown]

NARRATIVE: CASE EVENT DATE: 201506
